FAERS Safety Report 6712784-8 (Version None)
Quarter: 2010Q2

REPORT INFORMATION
  Report Type: 
  Country: None (occurrence: None)
  Receive Date: 20100506
  Receipt Date: 20100426
  Transmission Date: 20101027
  Serious: Yes (Other)
  Sender: FDA-Public Use
  Company Number: US-JNJFOC-20100306302

PATIENT
  Sex: Male
  Weight: 81 kg

DRUGS (2)
  1. REMICADE [Suspect]
     Indication: CROHN'S DISEASE
     Dosage: 300-400 MG EVERY 6-8 WEEKS
     Route: 042
  2. REMICADE [Suspect]
     Route: 042

REACTIONS (1)
  - HENOCH-SCHONLEIN PURPURA [None]
